FAERS Safety Report 9411932 (Version 5)
Quarter: 2014Q1

REPORT INFORMATION
  Report Type: Report from Study
  Country: AU (occurrence: AU)
  Receive Date: 20130722
  Receipt Date: 20140212
  Transmission Date: 20141002
  Serious: Yes (Hospitalization, Other)
  Sender: FDA-Public Use
  Company Number: PHHY2013AU076971

PATIENT
  Sex: Male

DRUGS (1)
  1. SANDOSTATIN LAR [Suspect]
     Indication: VIPOMA
     Dosage: 30 MG, UNK
     Route: 030
     Dates: start: 20130529

REACTIONS (5)
  - Accident [Recovered/Resolved]
  - Hip fracture [Recovered/Resolved]
  - Staphylococcal infection [Not Recovered/Not Resolved]
  - Haemoglobin decreased [Unknown]
  - General physical health deterioration [Unknown]
